FAERS Safety Report 8981168 (Version 1)
Quarter: 2012Q4

REPORT INFORMATION
  Report Type: 
  Country: BR (occurrence: BR)
  Receive Date: 20121221
  Receipt Date: 20121221
  Transmission Date: 20130627
  Serious: Yes (Life-Threatening, Hospitalization, Other)
  Sender: FDA-Public Use
  Company Number: BR-ASTELLAS-2012US012465

PATIENT
  Age: 18 Year
  Sex: Male
  Weight: 61 kg

DRUGS (32)
  1. PROGRAF [Suspect]
     Indication: RENAL TRANSPLANT
     Dosage: 4 mg, bid
     Route: 048
     Dates: start: 20031015
  2. PROGRAF [Suspect]
     Dosage: 6 mg, bid
     Route: 048
     Dates: start: 20031022
  3. PROGRAF [Suspect]
     Dosage: 4 mg, bid
     Route: 048
     Dates: start: 20031031
  4. PROGRAF [Suspect]
     Dosage: 5 mg, bid
     Route: 048
     Dates: start: 20040119
  5. PROGRAF [Suspect]
     Dosage: 1 mg, bid
     Route: 048
     Dates: start: 20040702, end: 20041014
  6. DACLIZUMAB [Suspect]
     Indication: RENAL TRANSPLANT
     Dosage: 120 mg, Total Dose
     Route: 042
     Dates: start: 20031016
  7. DACLIZUMAB [Suspect]
     Dosage: 60 mg, 2xWeekly
     Route: 042
     Dates: start: 20031030
  8. PREDNISONE [Suspect]
     Indication: RENAL TRANSPLANT
     Dosage: 30 mg, UID/QD
     Route: 048
     Dates: start: 20031015
  9. PREDNISONE [Suspect]
     Dosage: 27.5 mg, UID/QD
     Route: 048
     Dates: start: 20031110
  10. PREDNISONE [Suspect]
     Dosage: 25 mg, UID/QD
     Route: 048
     Dates: start: 20031113
  11. PREDNISONE [Suspect]
     Dosage: 22.5 mg, UID/QD
     Route: 048
     Dates: start: 20031118
  12. PREDNISONE [Suspect]
     Dosage: 20 mg, UID/QD
     Route: 048
     Dates: start: 20031127
  13. PREDNISONE [Suspect]
     Dosage: 17.5 mg, UID/QD
     Route: 048
     Dates: start: 20031204
  14. PREDNISONE [Suspect]
     Dosage: 15 mg, UID/QD
     Route: 048
     Dates: start: 20031211
  15. PREDNISONE [Suspect]
     Dosage: 12.5 mg, UID/QD
     Route: 048
     Dates: start: 20031230
  16. PREDNISONE [Suspect]
     Dosage: 10 mg, UID/QD
     Route: 048
     Dates: start: 20040106
  17. METHYLPREDNISOLONE [Suspect]
     Indication: RENAL TRANSPLANT
     Dosage: 500 mg, UID/QD
     Route: 042
     Dates: start: 20031031
  18. MYCOPHENOLATE MOFETIL [Suspect]
     Indication: RENAL TRANSPLANT
     Dosage: 1000 mg, bid
     Route: 065
     Dates: start: 20031015
  19. MYCOPHENOLATE MOFETIL [Suspect]
     Dosage: 500 mg, tid
     Route: 065
     Dates: start: 20031211
  20. MYCOPHENOLATE MOFETIL [Suspect]
     Dosage: 500 mg, bid
     Route: 065
     Dates: start: 20031216
  21. MYCOPHENOLATE MOFETIL [Suspect]
     Dosage: 500 mg, UID/QD
     Route: 048
     Dates: start: 20040119
  22. MYCOPHENOLATE MOFETIL [Suspect]
     Dosage: 500 mg, UID/QD
     Route: 065
     Dates: start: 20040128
  23. MYCOPHENOLATE MOFETIL [Suspect]
     Dosage: 250 mg, UID/QD
     Route: 065
     Dates: start: 20040203
  24. MYCOPHENOLATE MOFETIL [Suspect]
     Dosage: 1000 mg, bid
     Route: 065
     Dates: start: 20040816
  25. EPOETIN ALFA [Concomitant]
     Indication: PRODUCT USED FOR UNKNOWN INDICATION
     Dosage: 1 DF, qod
     Route: 058
     Dates: start: 20031211
  26. EPOETIN ALFA [Concomitant]
     Dosage: 1 DF, every 4 days
     Route: 058
     Dates: start: 20040316
  27. EPOETIN ALFA [Concomitant]
     Dosage: 1 DF, Weekly
     Route: 058
     Dates: start: 20040330
  28. NORIPURUM [Concomitant]
     Indication: PRODUCT USED FOR UNKNOWN INDICATION
     Dosage: 20 mg, 3xWeekly
     Route: 042
     Dates: start: 20031211
  29. NIFEDIPINE [Concomitant]
     Indication: PRODUCT USED FOR UNKNOWN INDICATION
     Dosage: 20 mg, bid
     Route: 065
     Dates: start: 20031020
  30. BACTRIM [Concomitant]
     Indication: PRODUCT USED FOR UNKNOWN INDICATION
     Dosage: 480 mg, UID/QD
     Route: 048
     Dates: start: 20031019
  31. RANITIDINE [Concomitant]
     Indication: PRODUCT USED FOR UNKNOWN INDICATION
     Dosage: 150 mg, bid
     Route: 065
     Dates: start: 20031015
  32. PROPRANOLOL [Concomitant]
     Indication: PRODUCT USED FOR UNKNOWN INDICATION
     Dosage: 40 mg, bid
     Route: 065
     Dates: start: 20031019

REACTIONS (4)
  - Parvovirus infection [Recovered/Resolved]
  - Cytomegalovirus infection [Recovered/Resolved]
  - Anaemia [Recovering/Resolving]
  - Hypertensive encephalopathy [Recovered/Resolved]
